FAERS Safety Report 7813385-0 (Version None)
Quarter: 2011Q4

REPORT INFORMATION
  Report Type: 
  Country: None (occurrence: None)
  Receive Date: 20111014
  Receipt Date: 20111004
  Transmission Date: 20120403
  Serious: Yes (Other)
  Sender: FDA-Public Use
  Company Number: IE-AMGEN-IRLSP2011035211

PATIENT
  Age: 36 Year
  Sex: Female

DRUGS (1)
  1. ENBREL [Suspect]
     Indication: ANKYLOSING SPONDYLITIS
     Dosage: UNK

REACTIONS (6)
  - EPISTAXIS [None]
  - MENORRHAGIA [None]
  - PULMONARY HAEMORRHAGE [None]
  - HAEMOPTYSIS [None]
  - GINGIVAL BLEEDING [None]
  - HAEMORRHAGE [None]
